FAERS Safety Report 8245252-5 (Version None)
Quarter: 2012Q1

REPORT INFORMATION
  Report Type: 
  Country: None (occurrence: None)
  Receive Date: 20120329
  Receipt Date: 20120323
  Transmission Date: 20120608
  Serious: Yes (Hospitalization)
  Sender: FDA-Public Use
  Company Number: GB-ROCHE-1051916

PATIENT
  Sex: Male
  Weight: 88 kg

DRUGS (3)
  1. HYDROXYCHLOROQUINE SULFATE [Concomitant]
  2. MABTHERA [Suspect]
     Indication: PRODUCT USED FOR UNKNOWN INDICATION
     Dosage: LAST DOSE PRIOR TO SAE : 25/AUG/2011
     Dates: start: 20110811
  3. METHOTREXATE [Concomitant]

REACTIONS (1)
  - AORTIC BYPASS [None]
